FAERS Safety Report 19217461 (Version 1)
Quarter: 2021Q2

REPORT INFORMATION
  Report Type: Spontaneous
  Country: IN (occurrence: IN)
  Receive Date: 20210505
  Receipt Date: 20210505
  Transmission Date: 20210717
  Serious: Yes (Death)
  Sender: FDA-Public Use
  Company Number: IN-PFIZER INC-2021104925

PATIENT
  Age: 43 Year
  Sex: Female

DRUGS (4)
  1. DEXONA [DEXAMETHASONE] [Concomitant]
     Active Substance: DEXAMETHASONE
     Dosage: 8 MG, 8 HRLY
  2. LORBRIQUA [Suspect]
     Active Substance: LORLATINIB
     Dosage: 100 MG, 1X/DAY
     Route: 048
     Dates: start: 20210219, end: 20210408
  3. LORBRIQUA [Suspect]
     Active Substance: LORLATINIB
     Dosage: 100 MG, 1X/DAY
     Route: 048
     Dates: start: 20210130
  4. LEVIPIL [Concomitant]
     Active Substance: LEVETIRACETAM
     Dosage: 500 MG, 1?1

REACTIONS (3)
  - Death [Fatal]
  - Pyrexia [Unknown]
  - Gait disturbance [Unknown]

NARRATIVE: CASE EVENT DATE: 20210408
